FAERS Safety Report 12459926 (Version 1)
Quarter: 2016Q2

REPORT INFORMATION
  Report Type: Spontaneous
  Country: US (occurrence: None)
  Receive Date: 20160610
  Receipt Date: 20160610
  Transmission Date: 20160815
  Serious: No
  Sender: FDA-Public Use
  Company Number: None

PATIENT
  Age: 38 Year
  Sex: Female

DRUGS (5)
  1. MAKENA [Suspect]
     Active Substance: HYDROXYPROGESTERONE CAPROATE
     Indication: PREMATURE LABOUR
     Route: 030
  2. IBUPROFEN. [Concomitant]
     Active Substance: IBUPROFEN
  3. DOXYCYCL [Concomitant]
  4. HYC [Concomitant]
  5. HYDROCO/APAP [Concomitant]
     Active Substance: ACETAMINOPHEN\HYDROCODONE

REACTIONS (2)
  - Abortion spontaneous [None]
  - Maternal exposure timing unspecified [None]

NARRATIVE: CASE EVENT DATE: 201606
